FAERS Safety Report 7628200-8 (Version None)
Quarter: 2011Q3

REPORT INFORMATION
  Report Type: 
  Country: None (occurrence: None)
  Receive Date: 20110722
  Receipt Date: 20110719
  Transmission Date: 20111222
  Serious: Yes (Death, Hospitalization, Other)
  Sender: FDA-Public Use
  Company Number: US-BAYER-2011-045358

PATIENT
  Age: 57 Year
  Sex: Male

DRUGS (7)
  1. NEXAVAR [Suspect]
     Dosage: 400 MG, QD
  2. OXALIPLATIN [Suspect]
     Indication: HEPATIC NEOPLASM MALIGNANT
  3. ANTI-DIABETICS [Concomitant]
     Indication: TYPE 2 DIABETES MELLITUS
     Route: 048
  4. ANGIOPOIETIN INHIBITOR [Suspect]
     Indication: HEPATIC NEOPLASM MALIGNANT
     Dosage: UNK
  5. GEMCITABINE [Suspect]
     Indication: HEPATIC NEOPLASM MALIGNANT
  6. NEXAVAR [Suspect]
     Indication: HEPATIC NEOPLASM MALIGNANT
     Dosage: 400 MG, BID
     Route: 048
  7. ACE INHIBITOR NOS [Concomitant]
     Indication: HYPERTENSION

REACTIONS (8)
  - HEPATIC NEOPLASM MALIGNANT [None]
  - EJECTION FRACTION DECREASED [None]
  - ADVERSE EVENT [None]
  - ARTERIOSPASM CORONARY [None]
  - RENAL FAILURE [None]
  - HYPOTENSION [None]
  - MULTI-ORGAN FAILURE [None]
  - OESOPHAGEAL DISORDER [None]
